FAERS Safety Report 17033386 (Version 1)
Quarter: 2019Q4

REPORT INFORMATION
  Report Type: Spontaneous
  Country: US (occurrence: US)
  Receive Date: 20191114
  Receipt Date: 20191114
  Transmission Date: 20200122
  Serious: No
  Sender: FDA-Public Use
  Company Number: US-SA-2019SA308003

PATIENT
  Sex: Female

DRUGS (1)
  1. AMBIEN CR [Suspect]
     Active Substance: ZOLPIDEM TARTRATE
     Dosage: UNK
     Route: 065

REACTIONS (5)
  - Withdrawal syndrome [Unknown]
  - Unevaluable event [Unknown]
  - Limb operation [Unknown]
  - Visual impairment [Unknown]
  - Product use issue [Unknown]
